FAERS Safety Report 5472637-2 (Version None)
Quarter: 2007Q4

REPORT INFORMATION
  Report Type: 
  Country: None (occurrence: None)
  Receive Date: 20071001
  Receipt Date: 20060821
  Transmission Date: 20080405
  Serious: No
  Sender: FDA-Public Use
  Company Number: US-ASTRAZENECA-2006UW16591

PATIENT
  Age: 56 Year
  Sex: Female
  Weight: 63.5 kg

DRUGS (2)
  1. ARIMIDEX [Suspect]
     Indication: BREAST CANCER
     Route: 048
  2. CALCIUM [Concomitant]

REACTIONS (5)
  - BREAST SWELLING [None]
  - HOT FLUSH [None]
  - NEUROPATHY PERIPHERAL [None]
  - SWELLING [None]
  - VULVOVAGINAL DISCOMFORT [None]
